FAERS Safety Report 7693477-X (Version None)
Quarter: 2011Q3

REPORT INFORMATION
  Report Type: 
  Country: None (occurrence: None)
  Receive Date: 20110819
  Receipt Date: 20110819
  Transmission Date: 20111222
  Serious: Yes (Life-Threatening, Hospitalization)
  Sender: FDA-Public Use
  Company Number: None

PATIENT

DRUGS (4)
  1. ASPIRIN [Concomitant]
  2. PRIVIGEN [Suspect]
     Indication: KAWASAKI'S DISEASE
     Dosage: 25 G
     Route: 042
     Dates: start: 20110811, end: 20110812
  3. DIPHENHYDRAMINE HCL [Concomitant]
  4. ACETAMINOPHEN [Concomitant]

REACTIONS (1)
  - HAEMOLYTIC ANAEMIA [None]
